FAERS Safety Report 9637392 (Version 1)
Quarter: 2013Q4

REPORT INFORMATION
  Report Type: Spontaneous
  Country: US (occurrence: None)
  Receive Date: 20131018
  Receipt Date: 20131018
  Transmission Date: 20140711
  Serious: Yes (Other)
  Sender: FDA-Public Use
  Company Number: DSU-2013-04493

PATIENT
  Age: 76 Year
  Sex: Female

DRUGS (18)
  1. BENICAR [Suspect]
     Indication: HYPERTENSION
     Route: 048
     Dates: start: 20120601
  2. BENICAR HCT [Suspect]
     Indication: HYPERTENSION
     Dosage: 40/25 MG
     Route: 048
  3. LEVEMIR (INSULIN DETEMIR) [Concomitant]
  4. NOVOLOG (INSULIN ASPART) [Concomitant]
  5. AROMASIN(EXEMESTANE) [Concomitant]
  6. ERGOCALCIFEROL(ERGOCALCIFEROL [Concomitant]
  7. PERSANTINE(DIPYRIDAMOL) [Concomitant]
  8. PROTONIX [Concomitant]
  9. SYNTHROID(LEVOTHYROXINE SODIUM) [Concomitant]
  10. TOPROL XL(METOPROLOL SUCCINATE) [Concomitant]
  11. ECOTRIN [Concomitant]
  12. COENZYME Q10(UBIDECARENONE) [Concomitant]
  13. ZOCOR(SIMVASTATIN) [Concomitant]
  14. METANX ORAL (PYRIDOXINE HYDROCHLOR, CALCIUM MEFOLINATE, VITAMIN B12 NOS)(PYRIDONXINE HYDROCHLORIDE, CALCIUM MEFOLINATE, VITAMIN B12 NOS) [Concomitant]
  15. CREON [Concomitant]
  16. CHOLESTTYRAMINE-SUCROSE(COLESTYRAMINE) [Concomitant]
  17. CALCIUM(CALCIUM) [Concomitant]
  18. PROBIOTIC ACIDOPHILUS XTRA (LACTOBACILLUS ACIDOPHILUS) [Concomitant]

REACTIONS (35)
  - Diarrhoea [None]
  - Malabsorption [None]
  - Abdominal distension [None]
  - Eructation [None]
  - Blood thyroid stimulating hormone increased [None]
  - Hiatus hernia [None]
  - Uterine disorder [None]
  - Hernia [None]
  - Aspartate aminotransferase increased [None]
  - Alanine aminotransferase increased [None]
  - Blood sodium decreased [None]
  - Blood glucose increased [None]
  - Blood chloride decreased [None]
  - Blood creatine phosphokinase increased [None]
  - Blood calcium decreased [None]
  - Blood cholesterol decreased [None]
  - High density lipoprotein decreased [None]
  - Volume blood increased [None]
  - Abnormal faeces [None]
  - Weight decreased [None]
  - Haemoglobin decreased [None]
  - Haematocrit decreased [None]
  - Flatulence [None]
  - Nausea [None]
  - Abnormal faeces [None]
  - No therapeutic response [None]
  - Arthralgia [None]
  - Myalgia [None]
  - Blood parathyroid hormone increased [None]
  - Red blood cell count decreased [None]
  - Iron deficiency [None]
  - Vitamin B12 increased [None]
  - Blood folate increased [None]
  - Constipation [None]
  - Oedema peripheral [None]
